FAERS Safety Report 13405154 (Version 2)
Quarter: 2017Q2

REPORT INFORMATION
  Report Type: Report from Study
  Country: US (occurrence: US)
  Receive Date: 20170405
  Receipt Date: 20170511
  Transmission Date: 20170830
  Serious: Yes (Other)
  Sender: FDA-Public Use
  Company Number: US-JNJFOC-20170221612

PATIENT
  Age: 85 Year
  Sex: Female

DRUGS (3)
  1. IMBRUVICA [Suspect]
     Active Substance: IBRUTINIB
     Indication: CHRONIC LYMPHOCYTIC LEUKAEMIA
     Route: 048
     Dates: start: 20170116, end: 20170214
  2. WARFARIN [Suspect]
     Active Substance: WARFARIN
     Indication: BLOOD VISCOSITY INCREASED
     Route: 065
     Dates: start: 201702
  3. WARFARIN [Suspect]
     Active Substance: WARFARIN
     Indication: BLOOD VISCOSITY INCREASED
     Route: 065
     Dates: end: 20170214

REACTIONS (5)
  - Anaemia [Unknown]
  - Gastrointestinal haemorrhage [Recovered/Resolved]
  - Blood viscosity increased [Unknown]
  - Diverticulitis [Recovered/Resolved]
  - Atrial fibrillation [Recovering/Resolving]

NARRATIVE: CASE EVENT DATE: 20170131
